FAERS Safety Report 12729970 (Version 1)
Quarter: 2016Q3

REPORT INFORMATION
  Report Type: Report from Study
  Country: BR (occurrence: BR)
  Receive Date: 20160909
  Receipt Date: 20160909
  Transmission Date: 20161109
  Serious: Yes (Other)
  Sender: FDA-Public Use
  Company Number: BR-BRISTOL-MYERS SQUIBB COMPANY-BMS-2016-072993

PATIENT
  Sex: Female

DRUGS (1)
  1. ABATACEPT [Suspect]
     Active Substance: ABATACEPT
     Indication: RHEUMATOID ARTHRITIS
     Dosage: 750 MG, QMO
     Route: 042

REACTIONS (5)
  - Pain [Recovering/Resolving]
  - Carpal tunnel syndrome [Unknown]
  - Aphthous ulcer [Recovering/Resolving]
  - Gait disturbance [Recovering/Resolving]
  - Immunodeficiency [Recovering/Resolving]
